FAERS Safety Report 6170822-8 (Version None)
Quarter: 2009Q2

REPORT INFORMATION
  Report Type: 
  Country: None (occurrence: None)
  Receive Date: 20090427
  Receipt Date: 20090414
  Transmission Date: 20091009
  Serious: Yes (Other)
  Sender: FDA-Public Use
  Company Number: 2009040059

PATIENT
  Age: 16 Year
  Sex: Female
  Weight: 62.1428 kg

DRUGS (6)
  1. ASTEPRO [Suspect]
     Indication: SEASONAL ALLERGY
     Dosage: 1096 MCG (548 MCG, 2 IN 1 D), IN
     Route: 055
     Dates: start: 20090403, end: 20090408
  2. DEXADRINE (DEXTROAMPHETAMINE) [Concomitant]
  3. GUANFACINE HYDROCHLORIDE [Concomitant]
  4. UNSPECIFIED IMMUNOTHERAPY [Concomitant]
  5. ASTELIN [Concomitant]
  6. BENADRYL [Concomitant]

REACTIONS (5)
  - EYE ROLLING [None]
  - HYPERHIDROSIS [None]
  - LOSS OF CONSCIOUSNESS [None]
  - MUSCLE RIGIDITY [None]
  - VOMITING [None]
